FAERS Safety Report 9487539 (Version 3)
Quarter: 2013Q3

REPORT INFORMATION
  Report Type: Spontaneous
  Country: US (occurrence: US)
  Receive Date: 20130829
  Receipt Date: 20130920
  Transmission Date: 20140515
  Serious: Yes (Hospitalization)
  Sender: FDA-Public Use
  Company Number: US-GILEAD-2013-0082211

PATIENT
  Age: 60 Year
  Sex: Female

DRUGS (3)
  1. LETAIRIS [Suspect]
     Indication: PULMONARY HYPERTENSION
     Dosage: 10 MG, QD
     Dates: start: 20081210
  2. LETAIRIS [Suspect]
     Indication: HEART DISEASE CONGENITAL
  3. SILDENAFIL [Concomitant]
     Indication: PULMONARY HYPERTENSION
     Dosage: 20 MG, TID
     Dates: start: 20090424

REACTIONS (4)
  - Oedema [Recovering/Resolving]
  - Swelling [Recovering/Resolving]
  - Dyspnoea [Recovering/Resolving]
  - Fatigue [Recovering/Resolving]
